FAERS Safety Report 8214042-1 (Version None)
Quarter: 2012Q1

REPORT INFORMATION
  Report Type: 
  Country: None (occurrence: None)
  Receive Date: 20120314
  Receipt Date: 20120314
  Transmission Date: 20120608
  Serious: Yes (Hospitalization, Disabling)
  Sender: FDA-Public Use
  Company Number: None

PATIENT
  Sex: Male
  Weight: 95.2554 kg

DRUGS (3)
  1. HALOPERIDOL [Suspect]
     Indication: SCHIZOPHRENIA, PARANOID TYPE
  2. HALOPERIDOL [Suspect]
     Indication: HALLUCINATION, VISUAL
  3. ZOLOFT [Suspect]
     Indication: HALLUCINATION, VISUAL
     Dosage: 200 MILL 2 MONTH
     Dates: start: 19930101

REACTIONS (7)
  - ERECTILE DYSFUNCTION [None]
  - ALOPECIA [None]
  - BREAST CANCER [None]
  - VISION BLURRED [None]
  - ANDROGENS ABNORMAL [None]
  - NIGHT SWEATS [None]
  - TOOTH LOSS [None]
